FAERS Safety Report 6619838-5 (Version None)
Quarter: 2010Q1

REPORT INFORMATION
  Report Type: 
  Country: None (occurrence: None)
  Receive Date: 20100309
  Receipt Date: 20100303
  Transmission Date: 20100710
  Serious: Yes (Hospitalization)
  Sender: FDA-Public Use
  Company Number: IT-JNJFOC-20100111221

PATIENT
  Age: 53 Year
  Sex: Male

DRUGS (1)
  1. TAVANIC [Suspect]
     Indication: HYPERPYREXIA
     Route: 048

REACTIONS (7)
  - HEPATITIS CHOLESTATIC [None]
  - HYPERBILIRUBINAEMIA [None]
  - HYPERCREATININAEMIA [None]
  - JAUNDICE [None]
  - PRURITUS [None]
  - RENAL FAILURE ACUTE [None]
  - TRANSAMINASES ABNORMAL [None]
